FAERS Safety Report 6359786-1 (Version None)
Quarter: 2009Q3

REPORT INFORMATION
  Report Type: 
  Country: None (occurrence: None)
  Receive Date: 20090917
  Receipt Date: 20090909
  Transmission Date: 20100115
  Serious: Yes (Hospitalization, Congenital Anomaly)
  Sender: FDA-Public Use
  Company Number: A0680590A

PATIENT
  Sex: Male
  Weight: 2.7 kg

DRUGS (10)
  1. PAXIL [Suspect]
     Indication: DEPRESSION
     Dosage: 20MG PER DAY
     Dates: start: 20020101, end: 20030101
  2. VITAMIN TAB [Concomitant]
  3. WELLBUTRIN [Concomitant]
  4. ALBUTEROL [Concomitant]
  5. SEREVENT [Concomitant]
  6. FLOVENT [Concomitant]
  7. NORVASC [Concomitant]
  8. ATENOLOL [Concomitant]
  9. CROMOLYN SODIUM [Concomitant]
  10. INSULIN [Concomitant]

REACTIONS (4)
  - DRUG EXPOSURE DURING PREGNANCY [None]
  - PATENT DUCTUS ARTERIOSUS [None]
  - PERSISTENT FOETAL CIRCULATION [None]
  - TALIPES [None]
